FAERS Safety Report 7209517-8 (Version None)
Quarter: 2011Q1

REPORT INFORMATION
  Report Type: 
  Country: None (occurrence: None)
  Receive Date: 20110104
  Receipt Date: 20101222
  Transmission Date: 20110831
  Serious: Yes (Death, Hospitalization)
  Sender: FDA-Public Use
  Company Number: US-CELGENEUS-163-21880-10091416

PATIENT
  Sex: Male

DRUGS (2)
  1. REVLIMID [Suspect]
     Route: 048
     Dates: start: 20100301, end: 20100101
  2. REVLIMID [Suspect]
     Route: 048
     Dates: start: 20091101

REACTIONS (2)
  - LYMPHOMA [None]
  - DEATH [None]
